FAERS Safety Report 9254481 (Version 1)
Quarter: 2013Q2

REPORT INFORMATION
  Report Type: Spontaneous
  Country: SE (occurrence: SE)
  Receive Date: 20130425
  Receipt Date: 20130425
  Transmission Date: 20140414
  Serious: Yes (Hospitalization)
  Sender: FDA-Public Use
  Company Number: SE-PFIZER INC-2013127483

PATIENT
  Age: 72 Year
  Sex: Male

DRUGS (5)
  1. SUTENT [Suspect]
     Indication: RENAL CANCER METASTATIC
     Route: 048
  2. SPIRIVA [Concomitant]
  3. ENALAPRIL [Concomitant]
  4. SIMVASTATIN [Concomitant]
  5. TROMBYL [Concomitant]

REACTIONS (1)
  - Embolism arterial [Recovered/Resolved]
